FAERS Safety Report 16333190 (Version 1)
Quarter: 2019Q2

REPORT INFORMATION
  Report Type: Spontaneous
  Country: US (occurrence: US)
  Receive Date: 20190415
  Receipt Date: 20190415
  Transmission Date: 20190711
  Serious: No
  Sender: FDA-Public Use
  Company Number: None

PATIENT
  Age: 56 Year
  Sex: Female
  Weight: 102.06 kg

DRUGS (2)
  1. STELARA [Suspect]
     Active Substance: USTEKINUMAB
     Indication: PSORIATIC ARTHROPATHY
     Dosage: INJECT 90MG  SUBCUTANEOUSLY AT  WEEK 0 AND WEEK 4  AS DIRECTED
     Route: 058
     Dates: start: 201808
  2. STELARA [Suspect]
     Active Substance: USTEKINUMAB
     Indication: RHEUMATOID ARTHRITIS
     Dosage: INJECT 90MG  SUBCUTANEOUSLY AT  WEEK 0 AND WEEK 4  AS DIRECTED
     Route: 058
     Dates: start: 201808

REACTIONS (1)
  - Condition aggravated [None]
